FAERS Safety Report 10101190 (Version 3)
Quarter: 2014Q3

REPORT INFORMATION
  Report Type: Spontaneous
  Country: FR (occurrence: FR)
  Receive Date: 20140424
  Receipt Date: 20140723
  Transmission Date: 20150326
  Serious: Yes (Hospitalization)
  Sender: FDA-Public Use
  Company Number: FR-AMGEN INC.-FRASP2014029732

PATIENT
  Age: 41 Year
  Sex: Female

DRUGS (5)
  1. DOLIPRANE [Concomitant]
     Active Substance: ACETAMINOPHEN
     Indication: SPONDYLITIS
     Dosage: UNK, 1 TO 3 DOSAGE FORMS DAILY
     Route: 048
  2. IXPRIM [Concomitant]
     Active Substance: ACETAMINOPHEN\TRAMADOL HYDROCHLORIDE
     Indication: SPONDYLITIS
     Dosage: UNK, 1 TO 3 DOSAGE FORMS DAILY
     Route: 048
  3. ENBREL [Suspect]
     Active Substance: ETANERCEPT
     Indication: PRODUCT USED FOR UNKNOWN INDICATION
     Dosage: 50 MG, WEEKLY
     Route: 058
     Dates: start: 201212, end: 201311
  4. CEBUTID [Concomitant]
     Active Substance: FLURBIPROFEN
     Indication: SPONDYLITIS
     Dosage: UNK
     Route: 048
     Dates: start: 2011, end: 2013
  5. OMEPRAZOLE. [Concomitant]
     Active Substance: OMEPRAZOLE
     Dosage: 20 MG, 1X/DAY
     Route: 048
     Dates: start: 2011

REACTIONS (1)
  - Pyogenic granuloma [Recovered/Resolved]

NARRATIVE: CASE EVENT DATE: 201311
